FAERS Safety Report 5847071-3 (Version None)
Quarter: 2008Q3

REPORT INFORMATION
  Report Type: 
  Country: None (occurrence: None)
  Receive Date: 20080815
  Receipt Date: 20080804
  Transmission Date: 20090109
  Serious: Yes (Other)
  Sender: FDA-Public Use
  Company Number: US-PFIZER INC-2008065964

PATIENT
  Sex: Female
  Weight: 72.6 kg

DRUGS (15)
  1. NEURONTIN [Suspect]
     Indication: EPILEPSY
     Route: 048
     Dates: start: 20030101, end: 20030101
  2. DILANTIN [Suspect]
     Indication: EPILEPSY
     Route: 048
  3. LYRICA [Suspect]
     Indication: NEURALGIA
     Route: 048
     Dates: start: 20080101, end: 20080201
  4. LAMICTAL [Concomitant]
  5. ARICEPT [Concomitant]
  6. DURAGESIC-100 [Concomitant]
  7. NORCO [Concomitant]
  8. ATIVAN [Concomitant]
  9. TRAZODONE HCL [Concomitant]
     Indication: SLEEP DISORDER
  10. DEPO-ESTRADIOL [Concomitant]
  11. FLEXERIL [Concomitant]
  12. LAXATIVES [Concomitant]
  13. ACETYLSALICYLIC ACID SRT [Concomitant]
  14. VITAMIN TAB [Concomitant]
  15. BIOTIN [Concomitant]

REACTIONS (1)
  - CONVULSION [None]
